FAERS Safety Report 15498939 (Version 1)
Quarter: 2018Q4

REPORT INFORMATION
  Report Type: Spontaneous
  Country: US (occurrence: US)
  Receive Date: 20181015
  Receipt Date: 20181015
  Transmission Date: 20190205
  Serious: Yes (Hospitalization)
  Sender: FDA-Public Use
  Company Number: US-JNJFOC-20181017722

PATIENT
  Age: 46 Year
  Sex: Male
  Weight: 109.32 kg

DRUGS (1)
  1. INVOKANA [Suspect]
     Active Substance: CANAGLIFLOZIN
     Indication: TYPE 2 DIABETES MELLITUS
     Route: 048

REACTIONS (7)
  - Skin ulcer [Unknown]
  - Sepsis [Unknown]
  - Acute kidney injury [Recovered/Resolved]
  - Diabetic foot infection [Unknown]
  - Limb amputation [Unknown]
  - Osteomyelitis acute [Unknown]
  - Gangrene [Unknown]

NARRATIVE: CASE EVENT DATE: 201407
